FAERS Safety Report 8915773 (Version 1)
Quarter: 2012Q4

REPORT INFORMATION
  Report Type: 
  Country: US (occurrence: US)
  Receive Date: 20121119
  Receipt Date: 20121119
  Transmission Date: 20130627
  Serious: No
  Sender: FDA-Public Use
  Company Number: US-009507513-1211USA005284

PATIENT
  Age: 7 Year
  Sex: Female
  Weight: 23.58 kg

DRUGS (3)
  1. CLARITIN REDITABS [Suspect]
     Indication: HYPERSENSITIVITY
     Dosage: 10 mg, qd
     Route: 048
  2. CLARITIN REDITABS [Suspect]
     Dosage: 10 mg, Once
     Route: 048
     Dates: start: 20120903
  3. CLARITIN REDITABS [Suspect]
     Dosage: 10 mg, qam
     Route: 048
     Dates: start: 20120904

REACTIONS (1)
  - Overdose [Unknown]
